FAERS Safety Report 8135547-8 (Version None)
Quarter: 2012Q1

REPORT INFORMATION
  Report Type: 
  Country: None (occurrence: None)
  Receive Date: 20120103
  Receipt Date: 20111115
  Transmission Date: 20120608
  Serious: No
  Sender: FDA-Public Use
  Company Number: AE-2011-003419

PATIENT
  Sex: Male
  Weight: 94.3482 kg

DRUGS (1)
  1. INCIVEK [Suspect]
     Dosage: ORAL
     Route: 048

REACTIONS (8)
  - FATIGUE [None]
  - DYSPNOEA [None]
  - MALAISE [None]
  - RASH [None]
  - COUGH [None]
  - PRURITUS [None]
  - ANAEMIA [None]
  - IMPAIRED WORK ABILITY [None]
